FAERS Safety Report 13329269 (Version 1)
Quarter: 2017Q1

REPORT INFORMATION
  Report Type: Report from Study
  Country: BR (occurrence: BR)
  Receive Date: 20170313
  Receipt Date: 20170313
  Transmission Date: 20170428
  Serious: Yes (Hospitalization, Other)
  Sender: FDA-Public Use
  Company Number: BR-JNJFOC-20170310464

PATIENT
  Sex: Male
  Weight: 55 kg

DRUGS (2)
  1. SIMPONI [Suspect]
     Active Substance: GOLIMUMAB
     Indication: RHEUMATOID ARTHRITIS
     Route: 058
     Dates: start: 20140212, end: 201612
  2. NESINA [Concomitant]
     Active Substance: ALOGLIPTIN BENZOATE
     Route: 065

REACTIONS (2)
  - Pulmonary mass [Unknown]
  - Tuberculosis [Recovering/Resolving]
